FAERS Safety Report 10751285 (Version 1)
Quarter: 2015Q1

REPORT INFORMATION
  Report Type: Spontaneous
  Country: ES (occurrence: None)
  Receive Date: 20150128
  Receipt Date: 20150128
  Transmission Date: 20150721
  Serious: Yes (Death)
  Sender: FDA-Public Use
  Company Number: NSR_01767_2015

PATIENT
  Age: 75 Year
  Sex: Male

DRUGS (5)
  1. FLURAZEPAM (FLURAZEPAM) [Suspect]
     Active Substance: FLURAZEPAM HYDROCHLORIDE
     Indication: PRODUCT USED FOR UNKNOWN INDICATION
     Dosage: DF
  2. DIAZEPAM (DIAZEPAM) [Suspect]
     Active Substance: DIAZEPAM
     Indication: PRODUCT USED FOR UNKNOWN INDICATION
     Dosage: DF
  3. CITALOPRAM (CITALOPRAM) [Suspect]
     Active Substance: CITALOPRAM HYDROBROMIDE
     Indication: PRODUCT USED FOR UNKNOWN INDICATION
     Dosage: DF
  4. TRAMADOL (TRAMADOL) [Suspect]
     Active Substance: TRAMADOL
     Indication: PRODUCT USED FOR UNKNOWN INDICATION
     Dosage: DF
  5. VENLAFAXINE [Suspect]
     Active Substance: VENLAFAXINE HYDROCHLORIDE
     Indication: PRODUCT USED FOR UNKNOWN INDICATION
     Dosage: DF

REACTIONS (8)
  - Pulmonary oedema [None]
  - Completed suicide [None]
  - Toxicity to various agents [None]
  - Exposure via ingestion [None]
  - Gastric haemorrhage [None]
  - Intentional overdose [None]
  - Arteriosclerosis coronary artery [None]
  - Myocardial infarction [None]
